FAERS Safety Report 7282868-7 (Version None)
Quarter: 2011Q1

REPORT INFORMATION
  Report Type: 
  Country: None (occurrence: None)
  Receive Date: 20110209
  Receipt Date: 20110207
  Transmission Date: 20110831
  Serious: Yes (Other)
  Sender: FDA-Public Use
  Company Number: CR-PFIZER INC-2011027344

PATIENT
  Sex: Male

DRUGS (3)
  1. CHAMPIX [Suspect]
     Dosage: UNK
  2. LISINOPRIL [Concomitant]
     Indication: HYPERTENSION
     Dosage: UNK
  3. LANZOPRAL [Concomitant]
     Indication: GASTRITIS
     Dosage: UNK

REACTIONS (3)
  - ANOSMIA [None]
  - NAUSEA [None]
  - AGEUSIA [None]
